FAERS Safety Report 6426571-1 (Version None)
Quarter: 2009Q4

REPORT INFORMATION
  Report Type: 
  Country: None (occurrence: None)
  Receive Date: 20091030
  Receipt Date: 20091028
  Transmission Date: 20100525
  Serious: Yes (Other)
  Sender: FDA-Public Use
  Company Number: DK-EBEWE-1617MTX09

PATIENT
  Sex: Male

DRUGS (4)
  1. METHOTREXATE [Suspect]
     Indication: ACUTE FEBRILE NEUTROPHILIC DERMATOSIS
     Dates: start: 20060701
  2. PREDNISOLONE [Suspect]
     Indication: ARTHRITIS
     Dates: start: 20060210
  3. SULFASALAZINE [Concomitant]
  4. REMICADE [Concomitant]

REACTIONS (2)
  - ACUTE FEBRILE NEUTROPHILIC DERMATOSIS [None]
  - DISEASE PROGRESSION [None]
